FAERS Safety Report 6082931-2 (Version None)
Quarter: 2009Q1

REPORT INFORMATION
  Report Type: 
  Country: None (occurrence: None)
  Receive Date: 20090204
  Receipt Date: 20080219
  Transmission Date: 20090719
  Serious: No
  Sender: FDA-Public Use
  Company Number: 272384

PATIENT
  Age: 41 Year
  Sex: Female
  Weight: 120.2 kg

DRUGS (12)
  1. NOVOLOG [Suspect]
     Indication: INSULIN-REQUIRING TYPE 2 DIABETES MELLITUS
     Dosage: 30 IU, TID A.C., SUBCUTANEOUS ; 100 IU, TID, SUBCUTANEOUS ; 30 IU, TID A.C, SUBCUTANEOUS
     Route: 058
     Dates: start: 20080214, end: 20080214
  2. NOVOLOG [Suspect]
     Indication: INSULIN-REQUIRING TYPE 2 DIABETES MELLITUS
     Dosage: 30 IU, TID A.C., SUBCUTANEOUS ; 100 IU, TID, SUBCUTANEOUS ; 30 IU, TID A.C, SUBCUTANEOUS
     Route: 058
     Dates: end: 20080214
  3. NOVOLOG [Suspect]
     Indication: INSULIN-REQUIRING TYPE 2 DIABETES MELLITUS
     Dosage: 30 IU, TID A.C., SUBCUTANEOUS ; 100 IU, TID, SUBCUTANEOUS ; 30 IU, TID A.C, SUBCUTANEOUS
     Route: 058
     Dates: start: 20080216
  4. NOVOLOG [Suspect]
     Indication: INSULIN-REQUIRING TYPE 2 DIABETES MELLITUS
     Dosage: 30 IU, TID A.C., SUBCUTANEOUS ; 100 IU, TID, SUBCUTANEOUS ; 30 IU, TID A.C, SUBCUTANEOUS
     Route: 058
     Dates: start: 20080216
  5. LEVEMIR [Suspect]
     Indication: INSULIN-REQUIRING TYPE 2 DIABETES MELLITUS
     Dosage: 100 IU, QD AT H.S., SUBCUTANEOUS ; 100 IU, QD AT H.S., SUBCUTANEOUS
     Route: 058
     Dates: end: 20080214
  6. LEVEMIR [Suspect]
     Indication: INSULIN-REQUIRING TYPE 2 DIABETES MELLITUS
     Dosage: 100 IU, QD AT H.S., SUBCUTANEOUS ; 100 IU, QD AT H.S., SUBCUTANEOUS
     Route: 058
     Dates: start: 20080216
  7. SYNTHROID [Concomitant]
  8. ASPIRIN [Concomitant]
  9. GABAPENTIN [Concomitant]
  10. INDERAL /00030001/ (PROPRANOLOL) [Concomitant]
  11. ACTOS /01460201/ (PIOGLITAZONE) [Concomitant]
  12. AVAPRO [Concomitant]

REACTIONS (2)
  - BLOOD GLUCOSE DECREASED [None]
  - WRONG DRUG ADMINISTERED [None]
